FAERS Safety Report 17840756 (Version 2)
Quarter: 2020Q2

REPORT INFORMATION
  Report Type: Spontaneous
  Country: None (occurrence: US)
  Receive Date: 20200529
  Receipt Date: 20200617
  Transmission Date: 20200714
  Serious: Yes (Other)
  Sender: FDA-Public Use
  Company Number: US-AJANTA PHARMA USA INC.-2084314

PATIENT
  Age: 75 Year
  Sex: Male
  Weight: 88.64 kg

DRUGS (2)
  1. ASPIRIN. [Concomitant]
     Active Substance: ASPIRIN
  2. RANITIDINE (ANDA 209859) [Suspect]
     Active Substance: RANITIDINE
     Indication: HIATUS HERNIA
     Route: 048

REACTIONS (2)
  - Prostate cancer [Not Recovered/Not Resolved]
  - Recalled product administered [Not Recovered/Not Resolved]
